FAERS Safety Report 6531926-0 (Version None)
Quarter: 2010Q1

REPORT INFORMATION
  Report Type: 
  Country: None (occurrence: None)
  Receive Date: 20100108
  Receipt Date: 20100104
  Transmission Date: 20100710
  Serious: Yes (Life-Threatening)
  Sender: FDA-Public Use
  Company Number: FR-JNJFOC-20100101280

PATIENT
  Sex: Female

DRUGS (3)
  1. PEPCID DUO [Suspect]
     Route: 048
  2. PEPCID DUO [Suspect]
     Indication: ABDOMINAL PAIN UPPER
     Route: 048
  3. LIBRAX [Concomitant]

REACTIONS (2)
  - ANGIOEDEMA [None]
  - URTICARIA [None]
